FAERS Safety Report 9416672 (Version 4)
Quarter: 2013Q3

REPORT INFORMATION
  Report Type: Report from Study
  Country: FR (occurrence: FR)
  Receive Date: 20130724
  Receipt Date: 20130816
  Transmission Date: 20140515
  Serious: Yes (Disabling, Other)
  Sender: FDA-Public Use
  Company Number: FR-ASTELLAS-2013EU006294

PATIENT
  Age: 77 Year
  Sex: Male
  Weight: 75 kg

DRUGS (3)
  1. ENZALUTAMIDE [Suspect]
     Indication: PROSTATE CANCER
     Dosage: 160 MG, UNKNOWN/D
     Route: 048
     Dates: start: 20130619
  2. KARDEGIC [Concomitant]
     Dosage: UNK
     Route: 065
  3. PULMICORT [Concomitant]
     Dosage: UNK
     Route: 065

REACTIONS (9)
  - Haemoglobin decreased [Unknown]
  - Platelet count decreased [Unknown]
  - Hyperbilirubinaemia [Recovered/Resolved]
  - Blood creatinine abnormal [Unknown]
  - Prostatic specific antigen abnormal [Unknown]
  - Asthenia [Not Recovered/Not Resolved]
  - Aspartate aminotransferase increased [Not Recovered/Not Resolved]
  - Cholestasis [Recovered/Resolved]
  - Muscle spasms [Recovered/Resolved]
